FAERS Safety Report 4367526-0 (Version None)
Quarter: 2004Q2

REPORT INFORMATION
  Report Type: 
  Country: None (occurrence: None)
  Receive Date: 20040601
  Receipt Date: 20040304
  Transmission Date: 20050107
  Serious: Yes (Other)
  Sender: FDA-Public Use
  Company Number: GB-ROCHE-360711

PATIENT
  Age: 43 Year
  Sex: Female
  Weight: 96.5 kg

DRUGS (2)
  1. XENICAL [Suspect]
     Indication: OBESITY
     Route: 048
     Dates: start: 20030306, end: 20031030
  2. CITALOPRAM [Concomitant]
     Indication: DEPRESSION
     Route: 048
     Dates: start: 20040105

REACTIONS (1)
  - CHOLELITHIASIS [None]
